FAERS Safety Report 13239540 (Version 1)
Quarter: 2017Q1

REPORT INFORMATION
  Report Type: Spontaneous
  Country: US (occurrence: US)
  Receive Date: 20170216
  Receipt Date: 20170216
  Transmission Date: 20170428
  Serious: No
  Sender: FDA-Public Use
  Company Number: ALCN2017US001358

PATIENT
  Age: 50 Year
  Sex: Male

DRUGS (1)
  1. SYSTANE ULTRA [Suspect]
     Active Substance: POLYETHYLENE GLYCOL 400\PROPYLENE GLYCOL
     Indication: DRY EYE
     Dosage: UNK GTT, BID
     Route: 047
     Dates: start: 201701, end: 20170211

REACTIONS (2)
  - Erythema of eyelid [Unknown]
  - Periorbital oedema [Unknown]
